FAERS Safety Report 18080433 (Version 4)
Quarter: 2024Q1

REPORT INFORMATION
  Report Type: Spontaneous
  Country: US (occurrence: US)
  Receive Date: 20200728
  Receipt Date: 20240320
  Transmission Date: 20240410
  Serious: Yes (Life-Threatening, Hospitalization)
  Sender: FDA-Public Use
  Company Number: US-AMNEAL PHARMACEUTICALS-2020-AMRX-02098

PATIENT
  Age: 44 Year
  Sex: Female
  Weight: 74 kg

DRUGS (13)
  1. ACTIVELLA [Suspect]
     Active Substance: ESTRADIOL\NORETHINDRONE ACETATE
     Indication: Endometriosis
     Dosage: 1 DOSAGE FORM, QD
     Route: 048
     Dates: start: 20190130, end: 20200106
  2. ACTIVELLA [Suspect]
     Active Substance: ESTRADIOL\NORETHINDRONE ACETATE
     Dosage: 1 DOSAGE FORM, QD
     Route: 048
     Dates: start: 20200106, end: 20200710
  3. ACTIVELLA [Suspect]
     Active Substance: ESTRADIOL\NORETHINDRONE ACETATE
     Dosage: 1 DOSAGE FORM, QD
     Route: 048
     Dates: start: 20200714
  4. ELAGOLIX [Suspect]
     Active Substance: ELAGOLIX
     Indication: Endometriosis
     Dosage: 200 MILLIGRAM, 2 /DAY
     Route: 048
     Dates: start: 20190130, end: 20200106
  5. ELAGOLIX [Suspect]
     Active Substance: ELAGOLIX
     Dosage: 400 MILLIGRAM, DAILY
     Route: 048
     Dates: start: 20200106, end: 20200710
  6. ELAGOLIX [Suspect]
     Active Substance: ELAGOLIX
     Dosage: 400 MILLIGRAM, DAILY
     Route: 048
     Dates: start: 20200713
  7. ASPIRIN\CAFFEINE\SALICYLAMIDE [Concomitant]
     Active Substance: ASPIRIN\CAFFEINE\SALICYLAMIDE
     Indication: Migraine
     Dosage: 250/65 MG, AS REQUIRED
     Route: 048
     Dates: start: 1986
  8. CORTISONE [Concomitant]
     Active Substance: CORTISONE
     Indication: Dermatitis atopic
     Dosage: 3 DOSAGE FORM, DAILY
     Route: 061
     Dates: start: 2012
  9. LEVOTHYROXINE [Concomitant]
     Active Substance: LEVOTHYROXINE\LEVOTHYROXINE SODIUM
     Indication: Hypothyroidism
     Dosage: 200 MILLIGRAM, QD
     Route: 048
     Dates: start: 2017
  10. LEVOTHYROXINE [Concomitant]
     Active Substance: LEVOTHYROXINE\LEVOTHYROXINE SODIUM
     Dosage: 125 MG, EVERY 1 DAY
     Route: 065
     Dates: start: 2017
  11. BUPROPION [Concomitant]
     Active Substance: BUPROPION
     Indication: Migraine
     Dosage: 300 MILLIGRAM, QD
     Route: 048
     Dates: start: 20190503
  12. LISINOPRIL [Concomitant]
     Active Substance: LISINOPRIL
     Indication: Hypertension
     Dosage: 10 MILLIGRAM, 1 /DAY
     Route: 048
     Dates: start: 20190503
  13. HYDROCHLOROTHIAZIDE [Concomitant]
     Active Substance: HYDROCHLOROTHIAZIDE
     Indication: Hypertension
     Dosage: 12.5 MILLIGRAM, 1 /DAY
     Route: 048
     Dates: start: 20190503

REACTIONS (1)
  - COVID-19 [Recovered/Resolved]

NARRATIVE: CASE EVENT DATE: 20200710
